FAERS Safety Report 7465711-2 (Version None)
Quarter: 2011Q2

REPORT INFORMATION
  Report Type: 
  Country: None (occurrence: None)
  Receive Date: 20110509
  Receipt Date: 20110427
  Transmission Date: 20111010
  Serious: Yes (Death, Hospitalization)
  Sender: FDA-Public Use
  Company Number: B0715587A

PATIENT
  Sex: Female

DRUGS (11)
  1. ACETAMINOPHEN AND TRAMADOL HCL [Suspect]
     Route: 048
     Dates: start: 20101012
  2. EPIRUBICIN [Suspect]
     Indication: BREAST CANCER
     Dosage: 160MG CYCLIC
     Route: 042
     Dates: start: 20100716, end: 20100824
  3. PRIMPERAN TAB [Suspect]
     Dosage: 5MG SEE DOSAGE TEXT
     Route: 048
     Dates: start: 20101012
  4. ONDANSERTRON HYDROCHLORIDE [Suspect]
     Indication: PREMEDICATION
     Dosage: 8MG CYCLIC
     Route: 042
     Dates: start: 20100914, end: 20101026
  5. METHYLPREDNISOLONE [Suspect]
     Indication: PREMEDICATION
     Dosage: 16MG CYCLIC
     Route: 048
     Dates: start: 20100716, end: 20100824
  6. SOLU-MEDROL [Concomitant]
     Indication: PREMEDICATION
     Route: 042
     Dates: start: 20100914
  7. CYCLOPHOSPHAMIDE [Suspect]
     Indication: BREAST CANCER
     Dosage: 750MG CYCLIC
     Route: 042
     Dates: start: 20100716, end: 20100824
  8. TAXOTERE [Suspect]
     Dosage: 160MG CYCLIC
     Route: 042
     Dates: start: 20100914, end: 20101026
  9. HEXAQUINE [Suspect]
     Route: 048
     Dates: start: 20101012
  10. FLUOROURACIL [Suspect]
     Indication: BREAST CANCER
     Dosage: 750MG CYCLIC
     Route: 042
     Dates: start: 20100716, end: 20100824
  11. FERROUS SULFATE TAB [Suspect]
     Dosage: 80MG PER DAY
     Route: 048
     Dates: start: 20101012

REACTIONS (13)
  - DYSPNOEA [None]
  - HYPOXIA [None]
  - ANURIA [None]
  - CYTOLYTIC HEPATITIS [None]
  - CHOLESTASIS [None]
  - RENAL FAILURE [None]
  - LUNG DISORDER [None]
  - INFLAMMATION [None]
  - INFECTION [None]
  - PERICARDIAL EFFUSION [None]
  - ACUTE RESPIRATORY FAILURE [None]
  - HYPERCAPNIA [None]
  - OXYGEN SATURATION DECREASED [None]
